FAERS Safety Report 18863634 (Version 13)
Quarter: 2021Q3

REPORT INFORMATION
  Report Type: Spontaneous
  Country: DK (occurrence: DK)
  Receive Date: 20210209
  Receipt Date: 20210902
  Transmission Date: 20211014
  Serious: Yes (Death, Life-Threatening, Hospitalization, Disabling, Other)
  Sender: FDA-Public Use
  Company Number: DK-AUROBINDO-AUR-APL-2021-004704

PATIENT
  Age: 5 Year
  Sex: Male
  Weight: 9.7 kg

DRUGS (53)
  1. BENZYLPENICILLIN [Suspect]
     Active Substance: PENICILLIN G
     Indication: PRODUCT USED FOR UNKNOWN INDICATION
     Dosage: UNK
     Route: 065
  2. GENTAMICIN. [Suspect]
     Active Substance: GENTAMICIN
     Indication: PNEUMOCOCCAL SEPSIS
  3. M?M?RVAXPRO [Suspect]
     Active Substance: MEASLES VIRUS STRAIN ENDERS^ ATTENUATED EDMONSTON LIVE ANTIGEN\MUMPS VIRUS STRAIN B LEVEL JERYL LYNN LIVE ANTIGEN\RUBELLA VIRUS STRAIN WISTAR RA 27/3 LIVE ANTIGEN
     Indication: PNEUMOCOCCAL SEPSIS
     Dosage: UNK
     Route: 065
  4. SODIUM CHLORIDE. [Suspect]
     Active Substance: SODIUM CHLORIDE
     Indication: PNEUMONIA
     Dosage: UNK
     Route: 065
  5. FENTANYL. [Suspect]
     Active Substance: FENTANYL
     Indication: INTERSTITIAL LUNG DISEASE
  6. GENTAMICIN. [Suspect]
     Active Substance: GENTAMICIN
     Indication: ANTIBIOTIC THERAPY
     Dosage: UNK
     Route: 042
  7. PULMOZYME [Suspect]
     Active Substance: DORNASE ALFA
     Indication: INTERSTITIAL LUNG DISEASE
     Dosage: UNK
     Route: 065
  8. AMOXICILLIN+CLAVULANIC ACID [Suspect]
     Active Substance: AMOXICILLIN\CLAVULANIC ACID
     Dosage: UNK
     Route: 065
     Dates: start: 20160714, end: 20160720
  9. CEFUROXIM [Suspect]
     Active Substance: CEFUROXIME
     Indication: ANTIBIOTIC THERAPY
     Dosage: UNK
     Route: 042
  10. DURAGESIC [Suspect]
     Active Substance: FENTANYL
     Indication: CIRCULATORY COLLAPSE
  11. FENTANYL. [Suspect]
     Active Substance: FENTANYL
     Indication: MEASLES IMMUNISATION
  12. GENTAMICIN. [Suspect]
     Active Substance: GENTAMICIN
     Indication: ANTIBIOTIC THERAPY
  13. POTASSIUM CHLORIDE. [Suspect]
     Active Substance: POTASSIUM CHLORIDE
     Indication: PNEUMONIA
     Dosage: UNK
     Route: 065
  14. SALBUTAMOL [Suspect]
     Active Substance: ALBUTEROL
     Indication: PRODUCT USED FOR UNKNOWN INDICATION
     Dosage: UNK
     Route: 065
  15. DORNASE ALFA. [Suspect]
     Active Substance: DORNASE ALFA
     Indication: INTERSTITIAL LUNG DISEASE
     Dosage: UNK
     Route: 065
  16. DURAGESIC [Suspect]
     Active Substance: FENTANYL
     Indication: PNEUMOCOCCAL INFECTION
     Dosage: UNK
     Route: 065
  17. FENTANYL. [Suspect]
     Active Substance: FENTANYL
     Indication: RUBELLA IMMUNISATION
  18. FENTANYL. [Suspect]
     Active Substance: FENTANYL
     Indication: CEREBRAL ISCHAEMIA
  19. FENTANYL. [Suspect]
     Active Substance: FENTANYL
     Indication: INTESTINAL ISCHAEMIA
  20. FENTANYL. [Suspect]
     Active Substance: FENTANYL
     Indication: RESPIRATORY TRACT INFECTION
  21. PHENOXYMETHYLPENICILLIN [Suspect]
     Active Substance: PENICILLIN V
     Indication: ANTIBIOTIC THERAPY
  22. PROPOFOL. [Suspect]
     Active Substance: PROPOFOL
     Indication: PRODUCT USED FOR UNKNOWN INDICATION
     Dosage: UNK
     Route: 065
  23. RUBELLA VIRUS VACCINE LIVE ATTENUATED [Suspect]
     Active Substance: RUBELLA VIRUS STRAIN WISTAR RA 27/3 LIVE ANTIGEN
     Indication: PNEUMOCOCCAL SEPSIS
     Dosage: UNK
     Route: 065
  24. TAZOCIN [Suspect]
     Active Substance: PIPERACILLIN SODIUM\TAZOBACTAM SODIUM
     Indication: RESPIRATORY ARREST
  25. CIPROFLOXACIN. [Suspect]
     Active Substance: CIPROFLOXACIN
     Indication: PRODUCT USED FOR UNKNOWN INDICATION
     Dosage: UNK
     Route: 065
  26. CO?AMOXICLAV [Suspect]
     Active Substance: AMOXICILLIN\CLAVULANATE POTASSIUM
     Indication: PNEUMONIA
     Dosage: UNK
     Route: 065
     Dates: start: 20150611
  27. CO?AMOXICLAV [Suspect]
     Active Substance: AMOXICILLIN\CLAVULANATE POTASSIUM
     Dosage: UNK
     Route: 065
     Dates: start: 20160714, end: 20160720
  28. DURAGESIC [Suspect]
     Active Substance: FENTANYL
     Indication: CEREBRAL ISCHAEMIA
  29. MUMPS VIRUS VACCINE LIVE NOS [Suspect]
     Active Substance: MUMPS VIRUS STRAIN B LEVEL JERYL LYNN LIVE ANTIGEN
     Indication: PNEUMOCOCCAL SEPSIS
     Dosage: UNK
     Route: 065
  30. SODIUM CITRATE DIHYDRATE [Suspect]
     Active Substance: TRISODIUM CITRATE DIHYDRATE
     Indication: PNEUMONIA
     Dosage: UNK
     Route: 065
  31. VENTOLIN [Suspect]
     Active Substance: ALBUTEROL SULFATE
     Indication: PRODUCT USED FOR UNKNOWN INDICATION
     Dosage: UNK
     Route: 065
  32. AMOXICILLIN TRIHYDRATE [Suspect]
     Active Substance: AMOXICILLIN
     Indication: PRODUCT USED FOR UNKNOWN INDICATION
     Dosage: UNK
     Route: 065
  33. DURAGESIC [Suspect]
     Active Substance: FENTANYL
     Indication: PNEUMONIA
  34. FENTANYL. [Suspect]
     Active Substance: FENTANYL
     Indication: PNEUMOCOCCAL INFECTION
  35. FENTANYL. [Suspect]
     Active Substance: FENTANYL
     Indication: BRAIN INJURY
  36. FENTANYL. [Suspect]
     Active Substance: FENTANYL
     Indication: PNEUMONIA
  37. FENTANYL. [Suspect]
     Active Substance: FENTANYL
     Indication: PNEUMONIA ASPIRATION
  38. GENTAMICIN. [Suspect]
     Active Substance: GENTAMICIN
     Indication: MEASLES IMMUNISATION
  39. GENTAMICIN. [Suspect]
     Active Substance: GENTAMICIN
     Indication: MUMPS IMMUNISATION
  40. PHENOXYMETHYLPENICILLIN [Suspect]
     Active Substance: PENICILLIN V
     Indication: ANTIBIOTIC THERAPY
     Dosage: UNK
     Route: 065
  41. POTASSIUM CLAVULANATE [Suspect]
     Active Substance: CLAVULANATE POTASSIUM
     Indication: PRODUCT USED FOR UNKNOWN INDICATION
     Dosage: UNK
     Route: 065
  42. AMOXICILLIN+CLAVULANIC ACID [Suspect]
     Active Substance: AMOXICILLIN\CLAVULANIC ACID
     Indication: PNEUMONIA
     Dosage: UNK
     Route: 065
     Dates: start: 20150611, end: 20160720
  43. DORNASE ALFA. [Suspect]
     Active Substance: DORNASE ALFA
     Indication: INTERSTITIAL LUNG DISEASE
  44. DURAGESIC [Suspect]
     Active Substance: FENTANYL
     Indication: INTERSTITIAL LUNG DISEASE
  45. FENTANYL. [Suspect]
     Active Substance: FENTANYL
     Indication: ANTIBIOTIC THERAPY
     Dosage: UNK
     Route: 065
  46. FENTANYL. [Suspect]
     Active Substance: FENTANYL
     Indication: PNEUMOCOCCAL SEPSIS
  47. GENTAMICIN. [Suspect]
     Active Substance: GENTAMICIN
     Indication: RUBELLA IMMUNISATION
  48. MEROPENEM. [Suspect]
     Active Substance: MEROPENEM
     Indication: ANTIBIOTIC THERAPY
     Dosage: UNK
     Route: 065
  49. DURAGESIC [Suspect]
     Active Substance: FENTANYL
     Indication: PNEUMONIA ASPIRATION
  50. DURAGESIC [Suspect]
     Active Substance: FENTANYL
     Indication: RESPIRATORY TRACT INFECTION
  51. FENTANYL. [Suspect]
     Active Substance: FENTANYL
     Indication: MUMPS IMMUNISATION
  52. GLUCOSE [Suspect]
     Active Substance: DEXTROSE
     Indication: PNEUMONIA
     Dosage: UNK
     Route: 065
  53. TAZOCIN [Suspect]
     Active Substance: PIPERACILLIN SODIUM\TAZOBACTAM SODIUM
     Indication: VOMITING
     Dosage: UNK
     Route: 065

REACTIONS (44)
  - Pneumonia [Fatal]
  - Lung consolidation [Fatal]
  - Condition aggravated [Fatal]
  - Dyspnoea [Fatal]
  - Respiratory arrest [Fatal]
  - Respiratory tract infection bacterial [Fatal]
  - Interstitial lung disease [Fatal]
  - Diarrhoea [Fatal]
  - Endotracheal intubation [Fatal]
  - Circulatory collapse [Fatal]
  - Pneumonia aspiration [Fatal]
  - Spinal muscular atrophy [Fatal]
  - Inflammation [Fatal]
  - Motor neurone disease [Fatal]
  - Intestinal ischaemia [Fatal]
  - Muscular weakness [Fatal]
  - Pneumococcal sepsis [Fatal]
  - Vomiting [Fatal]
  - Bilevel positive airway pressure [Fatal]
  - Muscle atrophy [Fatal]
  - Demyelination [Fatal]
  - Dehydration [Fatal]
  - Dysphagia [Fatal]
  - Sputum increased [Fatal]
  - Increased bronchial secretion [Fatal]
  - Mechanical ventilation [Fatal]
  - Lower respiratory tract infection bacterial [Fatal]
  - Scoliosis [Fatal]
  - Ascites [Fatal]
  - Motor dysfunction [Fatal]
  - Chest X-ray abnormal [Fatal]
  - Pyrexia [Fatal]
  - Stoma closure [Fatal]
  - Cerebral ischaemia [Fatal]
  - Disease complication [Fatal]
  - Resuscitation [Fatal]
  - Malaise [Fatal]
  - Ischaemic cerebral infarction [Fatal]
  - Brain injury [Fatal]
  - Tachypnoea [Fatal]
  - Metabolic disorder [Fatal]
  - Injury [Fatal]
  - Atelectasis [Fatal]
  - Secretion discharge [Fatal]

NARRATIVE: CASE EVENT DATE: 20160620
